FAERS Safety Report 6866085-8 (Version None)
Quarter: 2010Q2

REPORT INFORMATION
  Report Type: 
  Country: None (occurrence: None)
  Receive Date: 20100601
  Receipt Date: 20090119
  Transmission Date: 20101027
  Serious: No
  Sender: FDA-Public Use
  Company Number: 2009-01017

PATIENT
  Age: 34 Year
  Sex: Female
  Weight: 76.2043 kg

DRUGS (1)
  1. ZICAM COLD REMEDY NASAL GEL [Suspect]
     Dosage: 5 DOSES X 2 DAYS
     Dates: start: 20090114, end: 20090116

REACTIONS (2)
  - AGEUSIA [None]
  - ANOSMIA [None]
